FAERS Safety Report 5450591-7 (Version None)
Quarter: 2007Q3

REPORT INFORMATION
  Report Type: 
  Country: None (occurrence: None)
  Receive Date: 20070912
  Receipt Date: 20070903
  Transmission Date: 20080115
  Serious: Yes (Hospitalization)
  Sender: FDA-Public Use
  Company Number: GB-ABBOTT-07P-167-0364113-00

PATIENT
  Sex: Female

DRUGS (8)
  1. HUMIRA [Suspect]
     Indication: RHEUMATOID ARTHRITIS
     Route: 058
     Dates: start: 20070201, end: 20070501
  2. METHOTREXATE [Concomitant]
     Indication: RHEUMATOID ARTHRITIS
     Route: 048
  3. PARACETAMOL [Concomitant]
     Indication: DRUG USE FOR UNKNOWN INDICATION
  4. STEROIDS [Concomitant]
     Indication: DRUG USE FOR UNKNOWN INDICATION
  5. SULFASALAZINE [Concomitant]
     Indication: RHEUMATOID ARTHRITIS
     Route: 048
  6. BENDROFLUMETHIAZIDE [Concomitant]
     Indication: BLOOD PRESSURE
     Route: 048
  7. LERCANIDIPINE [Concomitant]
     Indication: BLOOD PRESSURE
     Route: 048
  8. PREDNISOLONE [Concomitant]
     Indication: RHEUMATOID ARTHRITIS
     Route: 048

REACTIONS (4)
  - INFLUENZA LIKE ILLNESS [None]
  - JOINT SWELLING [None]
  - MOUTH ULCERATION [None]
  - RHEUMATOID ARTHRITIS [None]
